FAERS Safety Report 11921397 (Version 1)
Quarter: 2016Q1

REPORT INFORMATION
  Report Type: Spontaneous
  Country: US (occurrence: US)
  Receive Date: 20160115
  Receipt Date: 20160115
  Transmission Date: 20160526
  Serious: No
  Sender: FDA-Public Use
  Company Number: US-TEIKOKU PHARMA USA-TPU2016-00002

PATIENT
  Age: 76 Year
  Sex: Female
  Weight: 51.76 kg

DRUGS (4)
  1. LIDOCAINE PATCH [Suspect]
     Active Substance: LIDOCAINE
     Indication: PAIN
     Dosage: UP TO 3 PATCHES CUT INTO PIECES TO DIFFERNET PLACES OF BODY (NECK/SHOULDER/BACK/KNEE)
     Route: 061
     Dates: start: 20151230
  2. LIDODERM [Suspect]
     Active Substance: LIDOCAINE
     Indication: PAIN
     Dosage: UP TO 3 PATCHES CUT INTO PIECES TO DIFFERNET PLACES (NECK/SHOULDER/BACK/KNEE)
     Route: 061
     Dates: start: 2009
  3. LIDOCAINE PATCH [Suspect]
     Active Substance: LIDOCAINE
     Indication: ARTHRITIS
  4. LIDODERM [Suspect]
     Active Substance: LIDOCAINE
     Indication: ARTHRITIS

REACTIONS (3)
  - Hypoacusis [Not Recovered/Not Resolved]
  - Pain [Not Recovered/Not Resolved]
  - Intentional product use issue [Unknown]

NARRATIVE: CASE EVENT DATE: 20151231
